FAERS Safety Report 4942104-0 (Version None)
Quarter: 2006Q1

REPORT INFORMATION
  Report Type: 
  Country: None (occurrence: None)
  Receive Date: 20060313
  Receipt Date: 20050616
  Transmission Date: 20060701
  Serious: No
  Sender: FDA-Public Use
  Company Number: US-GLAXOSMITHKLINE-A0562969A

PATIENT
  Age: 69 Year
  Sex: Female

DRUGS (5)
  1. NICORETTE [Suspect]
  2. LISINOPRIL [Concomitant]
     Indication: BLOOD PRESSURE
     Route: 048
  3. ADVAIR DISKUS 100/50 [Concomitant]
     Route: 048
  4. CARTIA XT [Concomitant]
     Route: 048
  5. ASPIRIN [Concomitant]
     Route: 048

REACTIONS (6)
  - AGITATION [None]
  - DRUG ABUSER [None]
  - DRUG WITHDRAWAL SYNDROME [None]
  - GINGIVAL BLEEDING [None]
  - GINGIVAL SWELLING [None]
  - NICOTINE DEPENDENCE [None]
